FAERS Safety Report 6195012-4 (Version None)
Quarter: 2009Q2

REPORT INFORMATION
  Report Type: 
  Country: None (occurrence: None)
  Receive Date: 20090519
  Receipt Date: 20090512
  Transmission Date: 20091009
  Serious: Yes (Death)
  Sender: FDA-Public Use
  Company Number: A0784882A

PATIENT
  Sex: Female
  Weight: 46 kg

DRUGS (3)
  1. SERETIDE [Suspect]
     Dosage: 1PUFF TWICE PER DAY
     Route: 055
     Dates: start: 20090316
  2. CALTREN [Concomitant]
     Dosage: 1TAB PER DAY
     Dates: start: 19990101
  3. IGROTON [Concomitant]
     Dosage: 1TAB PER DAY
     Dates: start: 19990101

REACTIONS (2)
  - ACUTE RESPIRATORY FAILURE [None]
  - PALPITATIONS [None]
